FAERS Safety Report 8965592 (Version 1)
Quarter: 2012Q4

REPORT INFORMATION
  Report Type: Spontaneous
  Country: DE (occurrence: None)
  Receive Date: 20121205
  Receipt Date: 20121205
  Transmission Date: 20130627
  Serious: Yes (Hospitalization, Disabling, Congenital Anomaly, Other)
  Sender: FDA-Public Use
  Company Number: AUR-APL-2012-05087

PATIENT
  Sex: Male

DRUGS (3)
  1. LAMOTRIGINE [Suspect]
     Indication: EPILEPSY
     Dosage: (200 mg,  1 D), Transplacental
     Route: 064
  2. HUMALOG [Concomitant]
  3. FOLSAN [Concomitant]

REACTIONS (13)
  - Polyhydramnios [None]
  - Maternal drugs affecting foetus [None]
  - Caesarean section [None]
  - Congenital central nervous system anomaly [None]
  - Cerebral atrophy [None]
  - Laryngomalacia [None]
  - Retrognathia [None]
  - Bradycardia neonatal [None]
  - Hypotonia neonatal [None]
  - Atrial septal defect [None]
  - Convulsion neonatal [None]
  - Poor sucking reflex [None]
  - Dystonia [None]
